FAERS Safety Report 8464676-4 (Version None)
Quarter: 2012Q2

REPORT INFORMATION
  Report Type: 
  Country: None (occurrence: None)
  Receive Date: 20120620
  Receipt Date: 20120620
  Transmission Date: 20120825
  Serious: Yes (Hospitalization, Other)
  Sender: FDA-Public Use
  Company Number: None

PATIENT
  Sex: Female
  Weight: 83.9154 kg

DRUGS (1)
  1. CLINDAMYCIN HYDROCHLORIDE [Suspect]
     Indication: TOOTHACHE
     Dosage: 2 CAPS @FIRST THEN 1 CAP 4X A DAY FOR 7 DAYS PO
     Route: 048
     Dates: start: 20120423, end: 20120429

REACTIONS (3)
  - PAIN [None]
  - BACK PAIN [None]
  - CLOSTRIDIUM DIFFICILE COLITIS [None]
